FAERS Safety Report 7010495 (Version 8)
Quarter: 2016Q2

REPORT INFORMATION
  Report Type: Spontaneous
  Country: US (occurrence: US)
  Receive Date: 20090604
  Receipt Date: 20160405
  Transmission Date: 20160815
  Serious: Yes (Hospitalization, Other)
  Sender: FDA-Public Use
  Company Number: US-ASTRAZENECA-2009UW13521

PATIENT
  Age: 72 Year
  Sex: Male
  Weight: 89.8 kg

DRUGS (61)
  1. SYMBICORT [Suspect]
     Active Substance: BUDESONIDE\FORMOTEROL FUMARATE DIHYDRATE
     Indication: CHRONIC OBSTRUCTIVE PULMONARY DISEASE
     Dosage: 160/4.5, TWO PUFFS, TWO TIMES A DAY
     Route: 055
     Dates: start: 20131002
  2. SYMBICORT [Suspect]
     Active Substance: BUDESONIDE\FORMOTEROL FUMARATE DIHYDRATE
     Indication: ASTHMA
     Dosage: 160/4.5, TWO PUFFS, TWO TIMES A DAY
     Route: 055
     Dates: start: 2014
  3. ATROVENT [Concomitant]
     Active Substance: IPRATROPIUM BROMIDE
     Indication: ASTHMA
     Dosage: TWO PUFFS BID
     Route: 055
  4. ATROVENT [Concomitant]
     Active Substance: IPRATROPIUM BROMIDE
     Indication: CHRONIC OBSTRUCTIVE PULMONARY DISEASE
     Dosage: TWO PUFFS BID
     Route: 055
  5. CLORAZAPET [Concomitant]
     Indication: DEPRESSION
     Route: 048
  6. SYMBICORT [Suspect]
     Active Substance: BUDESONIDE\FORMOTEROL FUMARATE DIHYDRATE
     Indication: CHRONIC OBSTRUCTIVE PULMONARY DISEASE
     Dosage: 160/4.5, TWO PUFFS, TWO TIMES A DAY
     Route: 055
     Dates: start: 2010
  7. SYMBICORT [Suspect]
     Active Substance: BUDESONIDE\FORMOTEROL FUMARATE DIHYDRATE
     Indication: CHRONIC OBSTRUCTIVE PULMONARY DISEASE
     Dosage: 160/4.5, TWO PUFFS, TWO TIMES A DAY
     Route: 055
     Dates: start: 2014
  8. SYMBICORT [Suspect]
     Active Substance: BUDESONIDE\FORMOTEROL FUMARATE DIHYDRATE
     Indication: CHRONIC OBSTRUCTIVE PULMONARY DISEASE
     Dosage: 160/4.5 MCG, TWO PUFFS, TWO TIMES A DAY
     Route: 055
     Dates: start: 20160101
  9. ATROVENT [Concomitant]
     Active Substance: IPRATROPIUM BROMIDE
     Indication: ASTHMA
     Dosage: TWO PUFFS, THREE TIMES A DAY
     Route: 055
  10. METFORMIN [Concomitant]
     Active Substance: METFORMIN HYDROCHLORIDE
     Indication: DIABETES MELLITUS
     Route: 048
  11. ACTOS [Concomitant]
     Active Substance: PIOGLITAZONE HYDROCHLORIDE
     Indication: DIABETES MELLITUS
  12. ALLOPURINOL. [Concomitant]
     Active Substance: ALLOPURINOL
     Route: 048
  13. METHADONE [Concomitant]
     Active Substance: METHADONE HYDROCHLORIDE
     Indication: PAIN
     Route: 048
  14. SYMBICORT [Suspect]
     Active Substance: BUDESONIDE\FORMOTEROL FUMARATE DIHYDRATE
     Indication: EMPHYSEMA
     Dosage: 160/4.5 MCG, TWO PUFFS, TWO TIMES A DAY
     Route: 055
     Dates: start: 20160101
  15. ATENOLOL. [Suspect]
     Active Substance: ATENOLOL
     Route: 048
  16. ATROVENT [Concomitant]
     Active Substance: IPRATROPIUM BROMIDE
     Indication: CHRONIC OBSTRUCTIVE PULMONARY DISEASE
     Dosage: TWO PUFFS, THREE TIMES A DAY
     Route: 055
  17. CLORAZAPET [Concomitant]
     Indication: ANXIETY
     Route: 048
  18. VITAMIN D [Concomitant]
     Active Substance: CHOLECALCIFEROL
  19. FLUTICASONE [Concomitant]
     Active Substance: FLUTICASONE\FLUTICASONE PROPIONATE
     Indication: HYPERSENSITIVITY
     Dosage: 15 MG 1 SPRAY EACH NOSTRIL, EVERY MORNING
     Route: 045
  20. CHOLECALCIFEROL [Concomitant]
     Active Substance: CHOLECALCIFEROL
     Indication: SUPPLEMENTATION THERAPY
  21. AZELASTINE [Concomitant]
     Active Substance: AZELASTINE
     Indication: HYPERSENSITIVITY
     Dosage: 137 MCG 1 SPRAY, EACH NOSTRIL  EVERY MORNING
     Route: 045
  22. SYMBICORT [Suspect]
     Active Substance: BUDESONIDE\FORMOTEROL FUMARATE DIHYDRATE
     Indication: EMPHYSEMA
     Dosage: 160/4.5, TWO PUFFS, TWO TIMES A DAY
     Route: 055
     Dates: start: 20131002
  23. ATROVENT [Concomitant]
     Active Substance: IPRATROPIUM BROMIDE
     Indication: ASTHMA
     Dosage: TWO TIMES A DAY/ THREE TIMES A DAY
     Route: 055
  24. METFORMIN [Concomitant]
     Active Substance: METFORMIN HYDROCHLORIDE
     Indication: BLOOD GLUCOSE ABNORMAL
     Route: 048
  25. TOVIAZ [Concomitant]
     Active Substance: FESOTERODINE FUMARATE
     Indication: URINE ANALYSIS ABNORMAL
  26. METHADONE [Concomitant]
     Active Substance: METHADONE HYDROCHLORIDE
     Indication: DRUG DEPENDENCE
     Route: 048
  27. METHADONE [Concomitant]
     Active Substance: METHADONE HYDROCHLORIDE
     Indication: SPINAL COLUMN STENOSIS
     Route: 048
  28. METHADONE [Concomitant]
     Active Substance: METHADONE HYDROCHLORIDE
     Indication: PAIN
     Route: 048
  29. XANAX [Concomitant]
     Active Substance: ALPRAZOLAM
     Indication: NERVOUS SYSTEM DISORDER
     Route: 048
  30. PRIMIDONE. [Concomitant]
     Active Substance: PRIMIDONE
     Route: 048
  31. VITAMIN D3 [Concomitant]
     Active Substance: CHOLECALCIFEROL
  32. AVODART [Concomitant]
     Active Substance: DUTASTERIDE
     Dosage: 0.5 MG AT LUNCHTIME
     Route: 048
  33. XANAX [Concomitant]
     Active Substance: ALPRAZOLAM
     Indication: DEPRESSION
     Route: 048
  34. ECONAZOLE NITRATE. [Concomitant]
     Active Substance: ECONAZOLE NITRATE
     Indication: PRURITUS
     Dosage: AS REQUIRED
     Route: 061
  35. SYMBICORT [Suspect]
     Active Substance: BUDESONIDE\FORMOTEROL FUMARATE DIHYDRATE
     Indication: ASTHMA
     Dosage: 640 MCG, TWO TIMES A DAY
     Route: 055
  36. SYMBICORT [Suspect]
     Active Substance: BUDESONIDE\FORMOTEROL FUMARATE DIHYDRATE
     Indication: ASTHMA
     Dosage: 160/4.5, TWO PUFFS, TWO TIMES A DAY
     Route: 055
     Dates: start: 20131002
  37. SYMBICORT [Suspect]
     Active Substance: BUDESONIDE\FORMOTEROL FUMARATE DIHYDRATE
     Indication: ASTHMA
     Dosage: 160/4.5 MCG, TWO PUFFS, TWO TIMES A DAY
     Route: 055
     Dates: start: 20160101
  38. ATENOLOL. [Suspect]
     Active Substance: ATENOLOL
     Route: 048
  39. NEXIUM [Suspect]
     Active Substance: ESOMEPRAZOLE MAGNESIUM
     Indication: GASTROOESOPHAGEAL REFLUX DISEASE
     Route: 048
  40. ALLOPURINOL. [Concomitant]
     Active Substance: ALLOPURINOL
     Route: 048
  41. SYMBICORT [Suspect]
     Active Substance: BUDESONIDE\FORMOTEROL FUMARATE DIHYDRATE
     Indication: CHRONIC OBSTRUCTIVE PULMONARY DISEASE
     Dosage: 640 MCG, TWO TIMES A DAY
     Route: 055
  42. SYMBICORT [Suspect]
     Active Substance: BUDESONIDE\FORMOTEROL FUMARATE DIHYDRATE
     Indication: EMPHYSEMA
     Dosage: 640 MCG, TWO TIMES A DAY
     Route: 055
  43. SYMBICORT [Suspect]
     Active Substance: BUDESONIDE\FORMOTEROL FUMARATE DIHYDRATE
     Indication: ASTHMA
     Dosage: 160/4.5, TWO PUFFS, TWO TIMES A DAY
     Route: 055
     Dates: start: 2010
  44. SYMBICORT [Suspect]
     Active Substance: BUDESONIDE\FORMOTEROL FUMARATE DIHYDRATE
     Indication: EMPHYSEMA
     Dosage: 160/4.5, TWO PUFFS, TWO TIMES A DAY
     Route: 055
     Dates: start: 2010
  45. SYMBICORT [Suspect]
     Active Substance: BUDESONIDE\FORMOTEROL FUMARATE DIHYDRATE
     Indication: EMPHYSEMA
     Dosage: 160/4.5, TWO PUFFS, TWO TIMES A DAY
     Route: 055
     Dates: start: 2014
  46. SYMBICORT [Suspect]
     Active Substance: BUDESONIDE\FORMOTEROL FUMARATE DIHYDRATE
     Indication: ASTHMA
     Dosage: 160/4.5 MCG, TWO PUFFS, TWO TIMES A DAY
     Route: 055
     Dates: start: 20150915
  47. SYMBICORT [Suspect]
     Active Substance: BUDESONIDE\FORMOTEROL FUMARATE DIHYDRATE
     Indication: CHRONIC OBSTRUCTIVE PULMONARY DISEASE
     Dosage: 160/4.5 MCG, TWO PUFFS, TWO TIMES A DAY
     Route: 055
     Dates: start: 20150915
  48. SYMBICORT [Suspect]
     Active Substance: BUDESONIDE\FORMOTEROL FUMARATE DIHYDRATE
     Indication: EMPHYSEMA
     Dosage: 160/4.5 MCG, TWO PUFFS, TWO TIMES A DAY
     Route: 055
     Dates: start: 20150915
  49. CRESTOR [Suspect]
     Active Substance: ROSUVASTATIN CALCIUM
     Indication: BLOOD CHOLESTEROL ABNORMAL
     Route: 048
  50. OXYCODONE [Suspect]
     Active Substance: OXYCODONE
     Indication: PAIN
     Dosage: 7.5/325, TWO TIMES A DAY
     Route: 048
  51. METHADONE [Concomitant]
     Active Substance: METHADONE HYDROCHLORIDE
     Indication: DRUG DEPENDENCE
     Route: 048
  52. XANAX [Concomitant]
     Active Substance: ALPRAZOLAM
     Indication: ANXIETY
     Route: 048
  53. MIRTAZAPINE. [Concomitant]
     Active Substance: MIRTAZAPINE
     Route: 048
  54. ALBUTEROL. [Concomitant]
     Active Substance: ALBUTEROL
     Indication: DYSPNOEA
     Route: 055
  55. NEXIUM [Suspect]
     Active Substance: ESOMEPRAZOLE MAGNESIUM
     Indication: GASTROOESOPHAGEAL REFLUX DISEASE
     Route: 048
  56. ATROVENT [Concomitant]
     Active Substance: IPRATROPIUM BROMIDE
     Indication: CHRONIC OBSTRUCTIVE PULMONARY DISEASE
     Dosage: TWO TIMES A DAY/ THREE TIMES A DAY
     Route: 055
  57. GLYBURIDE. [Concomitant]
     Active Substance: GLYBURIDE
     Route: 048
  58. METHADONE [Concomitant]
     Active Substance: METHADONE HYDROCHLORIDE
     Indication: SPINAL COLUMN STENOSIS
     Route: 048
  59. PAXIL [Concomitant]
     Active Substance: PAROXETINE HYDROCHLORIDE
     Indication: DEPRESSION
     Route: 048
  60. LOSARTAN. [Concomitant]
     Active Substance: LOSARTAN
     Indication: CARDIAC DISORDER
     Route: 048
  61. FINASTERIDE. [Concomitant]
     Active Substance: FINASTERIDE
     Route: 048

REACTIONS (14)
  - Rib fracture [Unknown]
  - Swelling face [Unknown]
  - Drug dependence [Unknown]
  - Fall [Unknown]
  - Type 2 diabetes mellitus [Unknown]
  - Intentional product misuse [Unknown]
  - Drug dose omission [Unknown]
  - Blood cholesterol abnormal [Unknown]
  - Productive cough [Unknown]
  - Gastrooesophageal reflux disease [Unknown]
  - Product quality issue [Unknown]
  - Oesophageal injury [Unknown]
  - Renal failure [Unknown]
  - Intentional device misuse [Unknown]

NARRATIVE: CASE EVENT DATE: 2009
